FAERS Safety Report 7718479-6 (Version None)
Quarter: 2011Q3

REPORT INFORMATION
  Report Type: 
  Country: None (occurrence: None)
  Receive Date: 20110830
  Receipt Date: 20110708
  Transmission Date: 20111222
  Serious: Yes (Other)
  Sender: FDA-Public Use
  Company Number: US-ASTRAZENECA-2009UW13842

PATIENT
  Age: 87 Year
  Sex: Female
  Weight: 81.6 kg

DRUGS (8)
  1. NEXIUM [Suspect]
     Route: 048
  2. NORVASC [Concomitant]
  3. LIPITOR [Concomitant]
  4. LEXAPRO [Concomitant]
  5. XANAX [Concomitant]
  6. PLAVIX [Concomitant]
  7. MUCINEX [Concomitant]
  8. AVALIDE [Concomitant]

REACTIONS (3)
  - HYPERTENSION [None]
  - MALAISE [None]
  - ARTHRITIS [None]
